FAERS Safety Report 8302858-2 (Version None)
Quarter: 2012Q2

REPORT INFORMATION
  Report Type: 
  Country: None (occurrence: None)
  Receive Date: 20120420
  Receipt Date: 20120418
  Transmission Date: 20120825
  Serious: Yes (Other)
  Sender: FDA-Public Use
  Company Number: GB-PFIZER INC-2012095596

PATIENT
  Age: 61 Year
  Sex: Male
  Weight: 76.2 kg

DRUGS (2)
  1. ENALAPRIL MALEATE [Concomitant]
     Indication: HYPERTENSION
     Dosage: 20 MG, UNK
     Route: 048
     Dates: start: 19970101
  2. ATORVASTATIN [Suspect]
     Indication: BLOOD CHOLESTEROL INCREASED
     Dosage: 10 MG, UNK
     Route: 048

REACTIONS (5)
  - PHOTOPHOBIA [None]
  - DIZZINESS [None]
  - MALAISE [None]
  - HEADACHE [None]
  - MIGRAINE [None]
